FAERS Safety Report 8984613 (Version 1)
Quarter: 2012Q4

REPORT INFORMATION
  Report Type: 
  Country: FR (occurrence: FR)
  Receive Date: 20121225
  Receipt Date: 20121225
  Transmission Date: 20130627
  Serious: Yes (Disabling)
  Sender: FDA-Public Use
  Company Number: FR-SANOFI-AVENTIS-2012SA092589

PATIENT
  Age: 65 Year
  Sex: Male

DRUGS (14)
  1. LOVENOX [Suspect]
     Indication: DRUG USE FOR UNKNOWN INDICATION
     Route: 058
     Dates: start: 20121123
  2. NEFOPAM [Suspect]
     Indication: DRUG USE FOR UNKNOWN INDICATION
     Route: 042
     Dates: start: 20121123
  3. ATARAX [Suspect]
     Indication: DRUG USE FOR UNKNOWN INDICATION
     Route: 042
     Dates: start: 20121124
  4. PERFALGAN [Suspect]
     Indication: DRUG USE FOR UNKNOWN INDICATION
     Route: 042
     Dates: start: 20121123
  5. FOLFOX-4 [Concomitant]
     Indication: COLORECTAL ADENOCARCINOMA
     Route: 042
     Dates: start: 20121112, end: 20121112
  6. LASILIX [Concomitant]
     Dosage: unchanged
  7. AVODART [Concomitant]
     Dosage: unchanged
  8. PERMIXON [Concomitant]
     Dosage: unchanged
  9. TAMSULOSIN [Concomitant]
     Dosage: unchanged
  10. CIPROFIBRATE [Concomitant]
     Dosage: unchanged
  11. CORTANCYL [Concomitant]
     Dosage: unchanged
  12. SEROPLEX [Concomitant]
     Dosage: unchanged
  13. ACTISKENAN [Concomitant]
     Dosage: unchanged
  14. APROVEL [Concomitant]
     Dosage: unchanged

REACTIONS (2)
  - Neutropenia [Not Recovered/Not Resolved]
  - Dermatitis bullous [Not Recovered/Not Resolved]
